FAERS Safety Report 21392855 (Version 1)
Quarter: 2022Q3

REPORT INFORMATION
  Report Type: Spontaneous
  Country: US (occurrence: US)
  Receive Date: 20220929
  Receipt Date: 20220929
  Transmission Date: 20221027
  Serious: No
  Sender: FDA-Public Use
  Company Number: US-SA-SAC20220928000550

PATIENT

DRUGS (1)
  1. LANTUS SOLOSTAR [Suspect]
     Active Substance: INSULIN GLARGINE
     Route: 065

REACTIONS (5)
  - Eructation [Recovering/Resolving]
  - Eating disorder [Recovering/Resolving]
  - Dyspnoea [Recovering/Resolving]
  - Gastric disorder [Recovering/Resolving]
  - Dysgeusia [Recovering/Resolving]
